FAERS Safety Report 13302849 (Version 1)
Quarter: 2017Q1

REPORT INFORMATION
  Report Type: Spontaneous
  Country: ZA (occurrence: ZA)
  Receive Date: 20170307
  Receipt Date: 20170307
  Transmission Date: 20170428
  Serious: Yes (Death, Hospitalization)
  Sender: FDA-Public Use
  Company Number: ZA-IPCA LABORATORIES LIMITED-IPC201702-000171

PATIENT
  Age: 19 Year
  Sex: Female

DRUGS (1)
  1. METFORMIN HYDROCHLORIDE. [Suspect]
     Active Substance: METFORMIN HYDROCHLORIDE

REACTIONS (5)
  - Cardiac arrest [Unknown]
  - Intentional overdose [Fatal]
  - Metabolic acidosis [Fatal]
  - Hypoglycaemia [Unknown]
  - Hypotension [Fatal]
